FAERS Safety Report 12912042 (Version 2)
Quarter: 2016Q4

REPORT INFORMATION
  Report Type: Spontaneous
  Country: US (occurrence: US)
  Receive Date: 20161104
  Receipt Date: 20161110
  Transmission Date: 20170207
  Serious: No
  Sender: FDA-Public Use
  Company Number: US-SHIRE-US201615601

PATIENT
  Age: 67 Year
  Sex: Female
  Weight: 54.42 kg

DRUGS (5)
  1. VOLTAREN [Concomitant]
     Active Substance: DICLOFENAC SODIUM
     Indication: INFLAMMATION
  2. XIIDRA [Suspect]
     Active Substance: LIFITEGRAST
     Indication: DRY EYE
     Dosage: (5% SOLUTION)1 GTT(IN EACH EYE), 2X/DAY:BID
     Route: 047
     Dates: start: 20161018, end: 20161020
  3. ZOLOFT [Concomitant]
     Active Substance: SERTRALINE HYDROCHLORIDE
     Indication: PRODUCT USED FOR UNKNOWN INDICATION
     Dosage: 50 MG TABLET, 1X/DAY:QD
     Route: 048
     Dates: start: 2010
  4. VOLTAREN [Concomitant]
     Active Substance: DICLOFENAC SODIUM
     Indication: ARTHRITIS
     Dosage: UNK(GEL), 2X/DAY:BID
     Route: 061
  5. ALPRAZOLAM. [Concomitant]
     Active Substance: ALPRAZOLAM
     Indication: SLEEP DISORDER
     Dosage: 1 MG ( UP TO 1.5 TABS), 1X/DAY:QD
     Route: 048

REACTIONS (6)
  - Instillation site reaction [Recovered/Resolved]
  - Dysgeusia [Not Recovered/Not Resolved]
  - Condition aggravated [Not Recovered/Not Resolved]
  - Instillation site pain [Recovered/Resolved]
  - Drug ineffective [Unknown]
  - Dry eye [Recovered/Resolved]

NARRATIVE: CASE EVENT DATE: 20161018
